FAERS Safety Report 6158952-8 (Version None)
Quarter: 2009Q2

REPORT INFORMATION
  Report Type: 
  Country: None (occurrence: None)
  Receive Date: 20090417
  Receipt Date: 20090415
  Transmission Date: 20091009
  Serious: Yes (Death)
  Sender: FDA-Public Use
  Company Number: AU-WYE-G03513509

PATIENT
  Sex: Female

DRUGS (2)
  1. PRISTIQ [Suspect]
     Dosage: 50MG
     Dates: start: 20090101, end: 20090101
  2. PRISTIQ [Suspect]
     Dosage: INCREASED DOSE
     Dates: start: 20090101

REACTIONS (1)
  - DEATH [None]
